FAERS Safety Report 6548955-3 (Version None)
Quarter: 2010Q1

REPORT INFORMATION
  Report Type: 
  Country: None (occurrence: None)
  Receive Date: 20100125
  Receipt Date: 20100111
  Transmission Date: 20100710
  Serious: Yes (Hospitalization)
  Sender: FDA-Public Use
  Company Number: CH-RANBAXY-2010US-30473

PATIENT

DRUGS (11)
  1. KETOROLAC TROMETHAMINE [Suspect]
     Indication: PERIOPERATIVE ANALGESIA
     Dosage: UNK, UNK
     Route: 065
  2. PARACETAMOL [Suspect]
     Indication: PAIN
     Route: 065
  3. LIDOCAINE [Suspect]
     Indication: INDUCTION OF ANAESTHESIA
     Route: 065
  4. ROCURONIUM BROMIDE [Suspect]
     Indication: INDUCTION AND MAINTENANCE OF ANAESTHESIA
     Route: 065
  5. ALFENTANIL [Suspect]
     Indication: DRUG USE FOR UNKNOWN INDICATION
  6. OXYTOCIN [Suspect]
     Indication: DRUG USE FOR UNKNOWN INDICATION
  7. FENTANYL [Suspect]
     Indication: INDUCTION AND MAINTENANCE OF ANAESTHESIA
     Dosage: 200 UG, BOLUS
     Route: 065
  8. FENTANYL [Suspect]
     Dosage: 150 UG, UNK
     Route: 065
  9. MORPHINE [Suspect]
     Indication: PAIN
     Dosage: 2 MG, UNK
     Route: 065
  10. PROPOFOL [Concomitant]
     Indication: INDUCTION OF ANAESTHESIA
     Route: 065
  11. SEVOFLURANE [Concomitant]
     Indication: MAINTENANCE OF ANAESTHESIA
     Route: 065

REACTIONS (8)
  - BRADYKINESIA [None]
  - CARDIO-RESPIRATORY DISTRESS [None]
  - DYSPHONIA [None]
  - DYSTONIA [None]
  - MASKED FACIES [None]
  - MUSCLE RIGIDITY [None]
  - PARKINSONISM [None]
  - TACHYCARDIA [None]
